FAERS Safety Report 19268629 (Version 2)
Quarter: 2021Q4

REPORT INFORMATION
  Report Type: Spontaneous
  Country: US (occurrence: US)
  Receive Date: 20210517
  Receipt Date: 20211111
  Transmission Date: 20220303
  Serious: No
  Sender: FDA-Public Use
  Company Number: US-HORIZON THERAPEUTICS-HZN-2021-001009

PATIENT
  Sex: Male

DRUGS (10)
  1. TEPROTUMUMAB-TRBW [Suspect]
     Active Substance: TEPROTUMUMAB-TRBW
     Indication: Endocrine ophthalmopathy
     Dosage: 1200 MG, EVERY 3 WEEKS (FIRST INFUSION)
     Route: 065
     Dates: start: 20200514
  2. TEPROTUMUMAB-TRBW [Suspect]
     Active Substance: TEPROTUMUMAB-TRBW
     Dosage: 1200 MG, EVERY 3 WEEKS (SECOND INFUSION)
     Route: 065
     Dates: start: 20200604
  3. TEPROTUMUMAB-TRBW [Suspect]
     Active Substance: TEPROTUMUMAB-TRBW
     Dosage: 1200 MG, EVERY 3 WEEKS (THIRD INFUSION)
     Route: 065
     Dates: start: 20200625
  4. TEPROTUMUMAB-TRBW [Suspect]
     Active Substance: TEPROTUMUMAB-TRBW
     Dosage: 1200 MG, EVERY 3 WEEKS (FOURTH INFUSION)
     Route: 065
     Dates: start: 20200716
  5. TEPROTUMUMAB-TRBW [Suspect]
     Active Substance: TEPROTUMUMAB-TRBW
     Dosage: 1200 MG, EVERY 3 WEEKS (FIFTH INFUSION)
     Route: 065
     Dates: start: 20200806
  6. TEPROTUMUMAB-TRBW [Suspect]
     Active Substance: TEPROTUMUMAB-TRBW
     Dosage: 1200 MG, EVERY 3 WEEKS (SIXTH INFUSION)
     Route: 065
     Dates: start: 20200827
  7. TEPROTUMUMAB-TRBW [Suspect]
     Active Substance: TEPROTUMUMAB-TRBW
     Dosage: 1200 MG, EVERY 3 WEEKS (SEVENTH INFUSION)
     Route: 065
     Dates: start: 20200917
  8. TEPROTUMUMAB-TRBW [Suspect]
     Active Substance: TEPROTUMUMAB-TRBW
     Dosage: 1200 MG, EVERY 3 WEEKS (EIGHTH INFUSION)
     Route: 065
     Dates: start: 20201008
  9. METHIMAZOLE [Concomitant]
     Active Substance: METHIMAZOLE
     Indication: Product used for unknown indication
     Route: 065
  10. VITAMIN D3 [Concomitant]
     Active Substance: CHOLECALCIFEROL
     Indication: Product used for unknown indication
     Route: 065

REACTIONS (1)
  - Onychoclasis [Unknown]
